FAERS Safety Report 7631350-3 (Version None)
Quarter: 2011Q3

REPORT INFORMATION
  Report Type: 
  Country: None (occurrence: None)
  Receive Date: 20110701
  Receipt Date: 20110228
  Transmission Date: 20111222
  Serious: Yes (Hospitalization)
  Sender: FDA-Public Use
  Company Number: 7044986

PATIENT
  Age: 60 Year
  Sex: Female

DRUGS (8)
  1. RAMIPRIL [Concomitant]
  2. REBIF [Suspect]
     Indication: RELAPSING-REMITTING MULTIPLE SCLEROSIS
     Dosage: 44 MCG, 3 IN 1 WK, SUBCUTANEOUS
     Route: 058
     Dates: start: 20091130
  3. COUMADIN [Concomitant]
  4. ACETAMINOPHEN [Concomitant]
  5. TRAMADOL HCL [Concomitant]
  6. XANAX [Concomitant]
  7. CRESTOR [Concomitant]
  8. VENLAFAXINE [Concomitant]

REACTIONS (2)
  - MULTIPLE SCLEROSIS RELAPSE [None]
  - INFLUENZA LIKE ILLNESS [None]
